FAERS Safety Report 16631056 (Version 2)
Quarter: 2025Q3

REPORT INFORMATION
  Report Type: Report from Study
  Country: US (occurrence: US)
  Receive Date: 20190725
  Receipt Date: 20250708
  Transmission Date: 20251021
  Serious: Yes (Disabling, Other)
  Sender: AUROBINDO
  Company Number: US-AUROBINDO-AUR-APL-2019-041025

PATIENT
  Age: 41 Month
  Sex: Female

DRUGS (6)
  1. CARBOPLATIN [Suspect]
     Active Substance: CARBOPLATIN
     Indication: Medulloblastoma
     Dosage: 35 MILLIGRAM/SQ. METER, ONCE A DAY
     Route: 042
  2. VINCRISTINE [Suspect]
     Active Substance: VINCRISTINE
     Indication: Product used for unknown indication
     Route: 065
  3. CISPLATIN [Suspect]
     Active Substance: CISPLATIN
     Indication: Medulloblastoma
     Route: 042
  4. MESNA [Concomitant]
     Active Substance: MESNA
     Indication: Medulloblastoma
     Route: 042
  5. CYCLOPHOSPHAMIDE [Concomitant]
     Active Substance: CYCLOPHOSPHAMIDE
     Indication: Medulloblastoma
     Route: 042
  6. LOMUSTINE [Concomitant]
     Active Substance: LOMUSTINE
     Indication: Medulloblastoma
     Route: 048

REACTIONS (2)
  - Deafness neurosensory [Not Recovered/Not Resolved]
  - Toxicity to various agents [Not Recovered/Not Resolved]
